FAERS Safety Report 6369511-6 (Version None)
Quarter: 2009Q3

REPORT INFORMATION
  Report Type: 
  Country: None (occurrence: None)
  Receive Date: 20090917
  Receipt Date: 20090904
  Transmission Date: 20100115
  Serious: Yes (Hospitalization)
  Sender: FDA-Public Use
  Company Number: ALA_00348_2009

PATIENT
  Sex: Male

DRUGS (5)
  1. REGLAN [Suspect]
     Indication: GASTROOESOPHAGEAL REFLUX DISEASE
     Dosage: 10 MG BID ORAL
     Route: 048
     Dates: start: 20090201, end: 20090508
  2. TRILEPTAL [Concomitant]
  3. LEXAPRO [Concomitant]
  4. REMERON [Concomitant]
  5. XANAX [Concomitant]

REACTIONS (4)
  - AKATHISIA [None]
  - ANXIETY [None]
  - BIPOLAR DISORDER [None]
  - DEPRESSION [None]
